FAERS Safety Report 6888526-2 (Version None)
Quarter: 2010Q3

REPORT INFORMATION
  Report Type: 
  Country: None (occurrence: None)
  Receive Date: 20100730
  Receipt Date: 20100719
  Transmission Date: 20110219
  Serious: Yes (Other)
  Sender: FDA-Public Use
  Company Number: AU-WATSON-2010-09932

PATIENT
  Age: 66 Year
  Sex: Male

DRUGS (3)
  1. CIPROFLOXACIN HCL [Suspect]
     Indication: MYCOBACTERIUM ULCERANS INFECTION
     Dosage: 500 MG, BID
     Route: 065
  2. CEFAZOLIN SODIUM                   09 [Suspect]
     Indication: MYCOBACTERIUM ULCERANS INFECTION
     Dosage: UNK
     Route: 042
  3. RIFAMPICIN [Suspect]
     Indication: MYCOBACTERIUM ULCERANS INFECTION
     Dosage: 300 MG, BID

REACTIONS (2)
  - IMMUNE RECONSTITUTION SYNDROME [None]
  - PARADOXICAL DRUG REACTION [None]
